FAERS Safety Report 9374062 (Version 2)
Quarter: 2013Q4

REPORT INFORMATION
  Report Type: Spontaneous
  Country: US (occurrence: US)
  Receive Date: 20130628
  Receipt Date: 20131014
  Transmission Date: 20140711
  Serious: No
  Sender: FDA-Public Use
  Company Number: US-009507513-1306USA009362

PATIENT
  Sex: Female
  Weight: 57.14 kg

DRUGS (4)
  1. IMPLANON [Suspect]
     Indication: CONTRACEPTION
     Dosage: 68 MG, UNK, IN LEFT ARM
     Route: 059
     Dates: start: 20120914
  2. NEXPLANON [Suspect]
     Indication: CONTRACEPTION
     Dosage: IN LEFT ARM
     Route: 059
     Dates: start: 20130514
  3. HPV VACCINE (UNSPECIFIED) [Concomitant]
     Indication: PROPHYLAXIS
     Dosage: UNK
     Dates: start: 20120914, end: 20120914
  4. MENINGOCOCCAL CONJ VACCINE (UNSPECIFIED) [Concomitant]
     Indication: PROPHYLAXIS
     Dates: start: 20120914, end: 20120914

REACTIONS (2)
  - Device breakage [Not Recovered/Not Resolved]
  - No adverse event [Unknown]
